FAERS Safety Report 4628677-6 (Version None)
Quarter: 2005Q1

REPORT INFORMATION
  Report Type: 
  Country: None (occurrence: None)
  Receive Date: 20050107
  Receipt Date: 20041001
  Transmission Date: 20050727
  Serious: No
  Sender: FDA-Public Use
  Company Number: 234986K04USA

PATIENT
  Age: 39 Year
  Sex: Female

DRUGS (1)
  1. REBIF [Suspect]
     Indication: MULTIPLE SCLEROSIS
     Dosage: 44 MCG, 3 IN 1 WEEKS,
     Dates: start: 20040414

REACTIONS (7)
  - ARTHRALGIA [None]
  - KIDNEY INFECTION [None]
  - NERVOUS SYSTEM DISORDER [None]
  - NEUROPATHY [None]
  - PARAESTHESIA [None]
  - PRURITUS [None]
  - URINARY TRACT INFECTION [None]
